FAERS Safety Report 7751348-4 (Version None)
Quarter: 2011Q3

REPORT INFORMATION
  Report Type: 
  Country: None (occurrence: None)
  Receive Date: 20110914
  Receipt Date: 20110317
  Transmission Date: 20111222
  Serious: No
  Sender: FDA-Public Use
  Company Number: US-BAYER-2011-024860

PATIENT
  Age: 44 Year
  Sex: Male
  Weight: 87.528 kg

DRUGS (1)
  1. MAGNEVIST [Suspect]
     Indication: NUCLEAR MAGNETIC RESONANCE IMAGING
     Dosage: 19 ML, RT AC BY HAND INJECTION
     Route: 042
     Dates: start: 20110317, end: 20110317

REACTIONS (2)
  - NAUSEA [None]
  - VOMITING [None]
